FAERS Safety Report 4659651-1 (Version None)
Quarter: 2005Q2

REPORT INFORMATION
  Report Type: 
  Country: None (occurrence: None)
  Receive Date: 20050411
  Receipt Date: 20050118
  Transmission Date: 20051028
  Serious: No
  Sender: FDA-Public Use
  Company Number: A03200500137

PATIENT
  Sex: Male

DRUGS (2)
  1. UROXATRAL [Suspect]
     Indication: POLLAKIURIA
     Dosage: 10 MG OD - ORAL
     Route: 048
     Dates: start: 20050111
  2. DIPHENHYDRAMINE HCL [Concomitant]

REACTIONS (1)
  - MICTURITION URGENCY [None]
